FAERS Safety Report 19364296 (Version 2)
Quarter: 2021Q2

REPORT INFORMATION
  Report Type: Spontaneous
  Country: US (occurrence: US)
  Receive Date: 20210603
  Receipt Date: 20210617
  Transmission Date: 20210717
  Serious: Yes (Other)
  Sender: FDA-Public Use
  Company Number: US-LUPIN PHARMACEUTICALS INC.-2021-08207

PATIENT
  Sex: Female
  Weight: 53.52 kg

DRUGS (1)
  1. LISINOPRIL AND HYDROCHLOROTHIAZIDE [Suspect]
     Active Substance: HYDROCHLOROTHIAZIDE\LISINOPRIL
     Indication: BLOOD PRESSURE INCREASED
     Dosage: 1 DOSAGE FORM, QD
     Route: 065
     Dates: start: 20210218, end: 20210415

REACTIONS (9)
  - Upper-airway cough syndrome [Recovering/Resolving]
  - Sleep disorder [Recovering/Resolving]
  - Dyspnoea [Recovering/Resolving]
  - Dysphonia [Recovering/Resolving]
  - Cough [Recovering/Resolving]
  - Vomiting [Recovering/Resolving]
  - Choking [Recovering/Resolving]
  - Blood pressure increased [Recovering/Resolving]
  - Cyanosis [Recovering/Resolving]

NARRATIVE: CASE EVENT DATE: 2021
